FAERS Safety Report 6854802-2 (Version None)
Quarter: 2010Q3

REPORT INFORMATION
  Report Type: 
  Country: None (occurrence: None)
  Receive Date: 20100717
  Receipt Date: 20080111
  Transmission Date: 20110219
  Serious: No
  Sender: FDA-Public Use
  Company Number: US-PFIZER INC-2008004602

PATIENT
  Sex: Female
  Weight: 82.1 kg

DRUGS (9)
  1. CHANTIX [Suspect]
     Indication: EX-TOBACCO USER
     Dates: start: 20071205, end: 20080101
  2. PERPHENAZINE [Concomitant]
  3. ARTANE [Concomitant]
  4. DILTIAZEM [Concomitant]
     Indication: HYPERTENSION
  5. PREVACID [Concomitant]
     Indication: GASTROOESOPHAGEAL REFLUX DISEASE
  6. DETROL LA [Concomitant]
  7. PSEUDOEPHEDRINE [Concomitant]
  8. LORATADINE [Concomitant]
  9. FLUTICASONE PROPIONATE [Concomitant]
     Route: 045

REACTIONS (6)
  - ECZEMA [None]
  - HAEMORRHAGE [None]
  - INSOMNIA [None]
  - PRURITUS [None]
  - RASH [None]
  - SKIN DISORDER [None]
